FAERS Safety Report 6497991-4 (Version None)
Quarter: 2009Q4

REPORT INFORMATION
  Report Type: 
  Country: None (occurrence: None)
  Receive Date: 20091215
  Receipt Date: 20091202
  Transmission Date: 20100525
  Serious: Yes (Hospitalization, Other)
  Sender: FDA-Public Use
  Company Number: PHHY2009CH52845

PATIENT
  Age: 38 Year
  Sex: Female

DRUGS (3)
  1. CERTICAN [Suspect]
     Indication: RENAL TRANSPLANT
     Dosage: UNK
     Dates: start: 20091001, end: 20091109
  2. IMUREK [Concomitant]
     Dosage: UNK
     Dates: start: 20091001, end: 20091109
  3. BACTRIM [Concomitant]
     Indication: RENAL TRANSPLANT
     Dosage: UNK
     Dates: start: 20091001

REACTIONS (10)
  - ALVEOLITIS [None]
  - COUGH [None]
  - DYSPNOEA [None]
  - ENDOTRACHEAL INTUBATION [None]
  - HAEMOGLOBIN DECREASED [None]
  - HAEMOPTYSIS [None]
  - LUNG CONSOLIDATION [None]
  - OROPHARYNGEAL PAIN [None]
  - PULMONARY HAEMORRHAGE [None]
  - TACHYCARDIA [None]
